FAERS Safety Report 17482639 (Version 1)
Quarter: 2020Q1

REPORT INFORMATION
  Report Type: Spontaneous
  Country: HU (occurrence: HU)
  Receive Date: 20200302
  Receipt Date: 20200302
  Transmission Date: 20200409
  Serious: Yes (Death, Other)
  Sender: FDA-Public Use
  Company Number: HU-PFIZER INC-2020090412

PATIENT
  Sex: Male

DRUGS (1)
  1. SUTENT [Suspect]
     Active Substance: SUNITINIB MALATE
     Dosage: 50 MG, CYCLIC (4/2 SCHEDULE)
     Dates: start: 2011

REACTIONS (3)
  - Obesity [Unknown]
  - Diabetes mellitus [Unknown]
  - Death [Fatal]

NARRATIVE: CASE EVENT DATE: 201910
